FAERS Safety Report 16531221 (Version 2)
Quarter: 2019Q3

REPORT INFORMATION
  Report Type: Spontaneous
  Country: GB (occurrence: GB)
  Receive Date: 20190705
  Receipt Date: 20190801
  Transmission Date: 20191004
  Serious: Yes (Hospitalization, Other)
  Sender: FDA-Public Use
  Company Number: GB-AUROBINDO-AUR-APL-2019-037508

PATIENT

DRUGS (11)
  1. KETAMIN [Suspect]
     Active Substance: KETAMINE
     Dosage: UNK, 20 LG?KG)1?H)1 (0.5 ML?H)1)
     Route: 051
  2. PARACETAMOL [Suspect]
     Active Substance: ACETAMINOPHEN
     Dosage: 65 MG/KG, ONCE A DAY
     Route: 042
  3. KETAMIN [Suspect]
     Active Substance: KETAMINE
     Indication: ABDOMINAL PAIN
     Dosage: UNK, 20 LG?KG (0.5 INFUSION WAS THEN INCREASED TO 28 LG?KG (0.7 ML?H)
     Route: 051
  4. KETAMIN [Suspect]
     Active Substance: KETAMINE
     Dosage: UNK, 20 LG?KG (0.5 ML?H 1  WITH A PCA BOLUS OF 40 LG?KG (1 ML), LOCKOUT PERIOD 20 MIN
     Route: 051
  5. PARACETAMOL [Suspect]
     Active Substance: ACETAMINOPHEN
     Dosage: 50 MG/KG, ONCE A DAY
     Route: 042
  6. KETAMIN [Suspect]
     Active Substance: KETAMINE
     Dosage: UNK, 40 LG?KG
     Route: 040
  7. KETAMIN [Suspect]
     Active Substance: KETAMINE
     Dosage: UNK
     Route: 051
  8. MORPHINE [Suspect]
     Active Substance: MORPHINE
     Indication: PAIN
     Dosage: UNK
     Route: 042
  9. PARACETAMOL [Suspect]
     Active Substance: ACETAMINOPHEN
     Indication: PAIN
     Dosage: UNK
     Route: 065
  10. KETAMIN [Suspect]
     Active Substance: KETAMINE
     Dosage: UNK
     Route: 051
  11. KETAMIN [Suspect]
     Active Substance: KETAMINE
     Dosage: UNK
     Route: 051

REACTIONS (8)
  - Colitis ulcerative [Unknown]
  - Lethargy [Unknown]
  - Megacolon [Unknown]
  - Pallor [Unknown]
  - Rectal haemorrhage [Unknown]
  - Drug ineffective [Not Recovered/Not Resolved]
  - Malaise [Unknown]
  - Condition aggravated [Unknown]
